FAERS Safety Report 7268426-9 (Version None)
Quarter: 2011Q1

REPORT INFORMATION
  Report Type: 
  Country: None (occurrence: None)
  Receive Date: 20110201
  Receipt Date: 20110126
  Transmission Date: 20110831
  Serious: Yes (Other)
  Sender: FDA-Public Use
  Company Number: US-PFIZER INC-2011019056

PATIENT
  Sex: Male
  Weight: 86 kg

DRUGS (4)
  1. ACETYLSALICYLIC ACID [Concomitant]
     Indication: PROPHYLAXIS
     Dosage: 180 MG, UNK
  2. LIPITOR [Suspect]
     Indication: BLOOD CHOLESTEROL INCREASED
     Dosage: 10 MG, DAILY
     Route: 048
  3. FISH OIL [Concomitant]
     Indication: CARDIOVASCULAR EVENT PROPHYLAXIS
     Dosage: UNK
  4. MULTI-VITAMINS [Concomitant]
     Indication: PROPHYLAXIS
     Dosage: UNK

REACTIONS (1)
  - MENISCUS LESION [None]
